FAERS Safety Report 18362359 (Version 2)
Quarter: 2020Q4

REPORT INFORMATION
  Report Type: Spontaneous
  Country: CZ (occurrence: CZ)
  Receive Date: 20201009
  Receipt Date: 20201014
  Transmission Date: 20210114
  Serious: Yes (Hospitalization)
  Sender: FDA-Public Use
  Company Number: CZ-CELLTRION INC.-2020CZ028523

PATIENT

DRUGS (7)
  1. RITUXIMAB (UNKNOWN) [Suspect]
     Active Substance: RITUXIMAB
     Dosage: FURTHER DOSE OF RITUXIMAB WAS ADMINISTERED
     Dates: start: 201910
  2. APIXABAN [Concomitant]
     Active Substance: APIXABAN
     Indication: ANTICOAGULANT THERAPY
     Dosage: FULL DOSE
  3. RITUXIMAB (UNKNOWN) [Suspect]
     Active Substance: RITUXIMAB
     Indication: GLOMERULONEPHRITIS MEMBRANOUS
     Dosage: 2 X 1000 MG GIVEN 14 DAYS APART
     Route: 042
  4. METHYLPREDNISOLONE. [Concomitant]
     Active Substance: METHYLPREDNISOLONE
     Indication: GLOMERULONEPHRITIS MEMBRANOUS
     Dosage: PULSES IN EVERY OTHER DAY REGIMEN (1.5 G IN TOTAL, IV)
     Route: 042
  5. PREDNISONE. [Concomitant]
     Active Substance: PREDNISONE
     Indication: GLOMERULONEPHRITIS MEMBRANOUS
     Dosage: REPEATED THERAPY WITH PREDNISONE 20 MG WITH TAPERING THE DOSE AND INTERRUPTION DURING SIX MONTHS
  6. NADROPARIN [Concomitant]
     Active Substance: NADROPARIN
     Indication: ANTICOAGULANT THERAPY
     Dosage: 0.4 ML, ONCE DAILY
  7. HUMAN IMMUNOGLOBULIN [Concomitant]
     Dosage: REPEATEDLY REPLACED

REACTIONS (8)
  - Pulmonary embolism [Recovering/Resolving]
  - Drug effective for unapproved indication [Unknown]
  - Therapeutic response decreased [Unknown]
  - Disease progression [Recovering/Resolving]
  - Pneumonia [Unknown]
  - Off label use [Unknown]
  - Renal vein thrombosis [Recovering/Resolving]
  - Glomerulonephritis membranous [Recovering/Resolving]
